FAERS Safety Report 21805196 (Version 1)
Quarter: 2023Q1

REPORT INFORMATION
  Report Type: Spontaneous
  Country: NL (occurrence: NL)
  Receive Date: 20230102
  Receipt Date: 20230102
  Transmission Date: 20230418
  Serious: Yes (Disabling, Other)
  Sender: FDA-Public Use
  Company Number: NL-LRB-00858727

PATIENT
  Sex: Male
  Weight: 81 kg

DRUGS (2)
  1. RISPERIDONE [Suspect]
     Active Substance: RISPERIDONE
     Indication: Psychotic disorder
     Dosage: 3 MILLIGRAM, ONCE A DAY (1 KEER PER DAG 3 MG)
     Route: 065
     Dates: start: 19950115
  2. RISPERIDONE [Suspect]
     Active Substance: RISPERIDONE
     Dosage: 1.5 MILLIGRAM, TWO TIMES A DAY (TWEE KEER PER DAG 1,5 MG)
     Route: 065
     Dates: start: 19950115

REACTIONS (4)
  - Weight increased [Recovered/Resolved]
  - Disturbance in attention [Recovered/Resolved]
  - Sexual dysfunction [Recovered/Resolved]
  - Poor quality sleep [Recovered/Resolved]
